FAERS Safety Report 18216522 (Version 2)
Quarter: 2020Q3

REPORT INFORMATION
  Report Type: Spontaneous
  Country: US (occurrence: US)
  Receive Date: 20200901
  Receipt Date: 20200909
  Transmission Date: 20201103
  Serious: No
  Sender: FDA-Public Use
  Company Number: US-009507513-2008USA013994

PATIENT
  Age: 8 Year
  Sex: Female

DRUGS (1)
  1. SINEMET [Suspect]
     Active Substance: CARBIDOPA\LEVODOPA
     Dosage: 23.75?95 MG EXTENDED RELEASE, 2 CAPSULES FOUR TIMES DAILY
     Route: 048

REACTIONS (2)
  - Off label use [Unknown]
  - Dyskinesia [Unknown]
